FAERS Safety Report 25439367 (Version 1)
Quarter: 2025Q2

REPORT INFORMATION
  Report Type: Spontaneous
  Country: LB (occurrence: LB)
  Receive Date: 20250616
  Receipt Date: 20250616
  Transmission Date: 20250717
  Serious: Yes (Other)
  Sender: GE HEALTHCARE
  Company Number: LB-GE HEALTHCARE-2025CSU007638

PATIENT
  Age: 48 Year
  Sex: Male
  Weight: 100 kg

DRUGS (9)
  1. OMNIPAQUE [Suspect]
     Active Substance: IOHEXOL
     Indication: Computerised tomogram abdomen
     Route: 042
     Dates: start: 20250609, end: 20250609
  2. OMNIPAQUE [Suspect]
     Active Substance: IOHEXOL
     Indication: Computerised tomogram pelvis
  3. LEVOFLOXACIN [Concomitant]
     Active Substance: LEVOFLOXACIN
  4. Mosar [Concomitant]
  5. Risek [Concomitant]
  6. Cynt [Concomitant]
  7. PREGABALIN [Concomitant]
     Active Substance: PREGABALIN
  8. EBASTINE [Concomitant]
     Active Substance: EBASTINE
  9. TARKA [Concomitant]
     Active Substance: TRANDOLAPRIL\VERAPAMIL HYDROCHLORIDE

REACTIONS (7)
  - Back pain [Recovered/Resolved]
  - Agitation [Recovered/Resolved]
  - Oxygen saturation decreased [Recovered/Resolved]
  - Dyspnoea [Recovered/Resolved]
  - Pyrexia [Recovered/Resolved]
  - Chills [Recovered/Resolved]
  - Pain [Recovered/Resolved]

NARRATIVE: CASE EVENT DATE: 20250609
